FAERS Safety Report 7516794-2 (Version None)
Quarter: 2011Q2

REPORT INFORMATION
  Report Type: 
  Country: None (occurrence: None)
  Receive Date: 20110523
  Receipt Date: 20110512
  Transmission Date: 20111010
  Serious: Yes (Other)
  Sender: FDA-Public Use
  Company Number: 1000020876

PATIENT
  Sex: Female

DRUGS (3)
  1. SAVELLA [Suspect]
     Dosage: 12.5 MG	(12.5 MG,  1 IN 1D),ORAL, 25 MG (12.5 MG,2 IN 1 D),ORAL 50 MG (25 MG,2 IN 1 D),ORAL
     Route: 048
  2. SAVELLA [Suspect]
     Dosage: 12.5 MG	(12.5 MG,  1 IN 1D),ORAL, 25 MG (12.5 MG,2 IN 1 D),ORAL 50 MG (25 MG,2 IN 1 D),ORAL
     Route: 048
  3. SAVELLA [Suspect]
     Dosage: 100 MG (50 MG,2 IN 1 D),ORAL
     Route: 048

REACTIONS (2)
  - HEPATOTOXICITY [None]
  - GASTROINTESTINAL DISORDER [None]
